FAERS Safety Report 7707550-0 (Version None)
Quarter: 2011Q3

REPORT INFORMATION
  Report Type: 
  Country: None (occurrence: None)
  Receive Date: 20110824
  Receipt Date: 20110818
  Transmission Date: 20111222
  Serious: Yes (Other)
  Sender: FDA-Public Use
  Company Number: GB-NOVOPROD-333399

PATIENT
  Sex: Female
  Weight: 100 kg

DRUGS (1)
  1. INSULATARD NPH HUMAN [Suspect]
     Indication: TYPE 2 DIABETES MELLITUS
     Dosage: 13 TO15 U, QD
     Route: 058
     Dates: start: 20110706

REACTIONS (3)
  - ARTHRALGIA [None]
  - DIZZINESS [None]
  - PALPITATIONS [None]
